FAERS Safety Report 10184499 (Version 4)
Quarter: 2014Q2

REPORT INFORMATION
  Report Type: Report from Study
  Country: US (occurrence: US)
  Receive Date: 20140521
  Receipt Date: 20140627
  Transmission Date: 20141212
  Serious: Yes (Hospitalization)
  Sender: FDA-Public Use
  Company Number: US-BIOGENIDEC-2013BI076846

PATIENT
  Age: 5 Year
  Sex: Male
  Weight: 15 kg

DRUGS (10)
  1. RFIXFC [Suspect]
     Indication: FACTOR IX DEFICIENCY
     Route: 042
     Dates: start: 20130312
  2. BACTRIM [Concomitant]
     Indication: ANTIBIOTIC PROPHYLAXIS
     Dates: start: 20130809, end: 20130812
  3. BACTRIM [Concomitant]
     Indication: ANTIBIOTIC PROPHYLAXIS
  4. ALBUTEROL [Concomitant]
     Indication: GENERAL SYMPTOM
     Dates: start: 20120429
  5. ALBUTEROL [Concomitant]
     Indication: WHEEZING
     Dates: start: 20120429
  6. ALBUTEROL [Concomitant]
     Indication: DYSPNOEA
     Dates: start: 20120429
  7. ALBUTEROL [Concomitant]
     Indication: GENERAL SYMPTOM
     Route: 055
     Dates: start: 20130109
  8. ALBUTEROL [Concomitant]
     Indication: WHEEZING
     Route: 055
     Dates: start: 20130109
  9. ALBUTEROL [Concomitant]
     Indication: DYSPNOEA
     Route: 055
     Dates: start: 20130109
  10. AMICAR [Concomitant]
     Indication: ANTIBIOTIC PROPHYLAXIS
     Dates: start: 20120326

REACTIONS (1)
  - Device occlusion [Recovered/Resolved]
